FAERS Safety Report 7371929-X (Version None)
Quarter: 2011Q1

REPORT INFORMATION
  Report Type: 
  Country: None (occurrence: None)
  Receive Date: 20110324
  Receipt Date: 20100419
  Transmission Date: 20110831
  Serious: No
  Sender: FDA-Public Use
  Company Number: US-BAUSCH-2010BL002083

PATIENT
  Sex: Male

DRUGS (2)
  1. FLUNISOLIDE [Suspect]
     Indication: PRODUCT USED FOR UNKNOWN INDICATION
     Route: 045
  2. FLUNISOLIDE [Suspect]
     Route: 045

REACTIONS (3)
  - EMOTIONAL DISTRESS [None]
  - HYPERSENSITIVITY [None]
  - ALOPECIA [None]
